FAERS Safety Report 12421031 (Version 1)
Quarter: 2016Q2

REPORT INFORMATION
  Report Type: Spontaneous
  Country: US (occurrence: US)
  Receive Date: 20160531
  Receipt Date: 20160531
  Transmission Date: 20160815
  Serious: Yes (Other)
  Sender: FDA-Public Use
  Company Number: US-APOPHARMA USA, INC.-2016AP008787

PATIENT

DRUGS (3)
  1. ALKERAN [Suspect]
     Active Substance: MELPHALAN
     Indication: RETINOBLASTOMA
     Dosage: 30 ?G, OTHER
     Route: 050
  2. ALKERAN [Suspect]
     Active Substance: MELPHALAN
     Dosage: 25 ?G, OTHER
     Route: 050
  3. TOPOTECAN [Concomitant]
     Active Substance: TOPOTECAN\TOPOTECAN HYDROCHLORIDE
     Indication: RETINOBLASTOMA
     Dosage: 20 ?G, UNKNOWN
     Route: 050

REACTIONS (5)
  - Hypotony of eye [Unknown]
  - Retinal pigment epitheliopathy [Unknown]
  - Iris disorder [Unknown]
  - Necrotising retinitis [Unknown]
  - Chorioretinal atrophy [Unknown]
